FAERS Safety Report 8237920-6 (Version None)
Quarter: 2012Q1

REPORT INFORMATION
  Report Type: 
  Country: None (occurrence: None)
  Receive Date: 20120327
  Receipt Date: 20120321
  Transmission Date: 20120608
  Serious: No
  Sender: FDA-Public Use
  Company Number: US-PFIZER INC-2012074611

PATIENT
  Sex: Female
  Weight: 77.098 kg

DRUGS (3)
  1. PRISTIQ [Suspect]
     Indication: ANXIETY
     Dosage: 50 MG, DAILY
  2. PRISTIQ [Suspect]
     Indication: DEPRESSION
  3. CLARITIN [Concomitant]
     Indication: HYPERSENSITIVITY
     Dosage: UNK, DAILY

REACTIONS (3)
  - PARAESTHESIA [None]
  - HYPOAESTHESIA [None]
  - NEUROPATHY PERIPHERAL [None]
